FAERS Safety Report 14531236 (Version 3)
Quarter: 2020Q4

REPORT INFORMATION
  Report Type: Report from Study
  Country: US (occurrence: US)
  Receive Date: 20180214
  Receipt Date: 20201106
  Transmission Date: 20210113
  Serious: Yes (Hospitalization, Disabling, Other)
  Sender: FDA-Public Use
  Company Number: US-SA-2018SA034832

PATIENT

DRUGS (24)
  1. ALEMTUZUMAB [Suspect]
     Active Substance: ALEMTUZUMAB
     Indication: MULTIPLE SCLEROSIS
     Dosage: 12 MG, QD
     Route: 041
     Dates: start: 20180129, end: 20180131
  2. METHYLPHENIDATE HYDROCHLORIDE. [Concomitant]
     Active Substance: METHYLPHENIDATE HYDROCHLORIDE
     Dosage: 1 EA
     Route: 048
     Dates: start: 20180206, end: 20180206
  3. METHYLPHENIDATE HYDROCHLORIDE. [Concomitant]
     Active Substance: METHYLPHENIDATE HYDROCHLORIDE
     Dosage: 0.5 EA
     Route: 048
     Dates: start: 20180206, end: 20180206
  4. ADVIL [IBUPROFEN] [Concomitant]
     Active Substance: IBUPROFEN
     Indication: BREAKTHROUGH PAIN
  5. ROCEPHIN [Concomitant]
     Active Substance: CEFTRIAXONE SODIUM
     Dosage: 2G IN 50ML @100 ML/HR, QD
     Route: 042
     Dates: start: 20180203, end: 20180206
  6. ZYRTEC [Concomitant]
     Active Substance: CETIRIZINE HYDROCHLORIDE
     Dosage: 10 MG, QD
     Route: 065
  7. TYSABRI [Concomitant]
     Active Substance: NATALIZUMAB
  8. STATIN [NYSTATIN] [Concomitant]
     Active Substance: NYSTATIN
     Route: 065
  9. FAMOTIDINE. [Concomitant]
     Active Substance: FAMOTIDINE
     Indication: DYSPEPSIA
     Dosage: 20 MG
     Route: 048
     Dates: start: 20180203, end: 20180203
  10. ADVIL [IBUPROFEN] [Concomitant]
     Active Substance: IBUPROFEN
     Indication: BODY TEMPERATURE INCREASED
  11. METHYLPHENIDATE HYDROCHLORIDE. [Concomitant]
     Active Substance: METHYLPHENIDATE HYDROCHLORIDE
     Dosage: 10 MG
     Route: 048
     Dates: start: 20180203, end: 20180203
  12. LOVENOX [Concomitant]
     Active Substance: ENOXAPARIN SODIUM
     Dosage: 40 MG, QD
     Route: 058
     Dates: start: 20180203, end: 20180206
  13. LACTULOSE. [Concomitant]
     Active Substance: LACTULOSE
     Dosage: 20 G; ONE ONE
     Route: 048
     Dates: start: 20180206, end: 20180206
  14. VALTREX [Concomitant]
     Active Substance: VALACYCLOVIR HYDROCHLORIDE
     Dosage: 500 MG, BID
     Route: 048
     Dates: start: 20180203, end: 20180206
  15. ALEMTUZUMAB [Suspect]
     Active Substance: ALEMTUZUMAB
     Dosage: 12 MG, QD
     Route: 041
     Dates: start: 20161212, end: 20161216
  16. ESTRADIOL. [Concomitant]
     Active Substance: ESTRADIOL
     Dosage: 50 MG
     Route: 065
     Dates: start: 20180203, end: 20180203
  17. AMPYRA [Concomitant]
     Active Substance: DALFAMPRIDINE
     Dosage: 1 TABLET, BID
     Route: 048
  18. RITALIN [Concomitant]
     Active Substance: METHYLPHENIDATE HYDROCHLORIDE
     Dosage: 1 TABLET 1AM AND 1 MIDDAY, BID
     Route: 048
  19. LEVAQUIN [Concomitant]
     Active Substance: LEVOFLOXACIN
     Dosage: 500MG IN 100 ML @ 100ML/HR; Q24H
     Route: 042
     Dates: start: 20180203, end: 20180204
  20. ACETAMINOPHEN. [Concomitant]
     Active Substance: ACETAMINOPHEN
     Indication: HEADACHE
     Dosage: 1000 MG, Q6H
     Route: 048
  21. TYLENOL WITH CODEIN [CODEINE PHOSPHATE;PARACETAMOL] [Concomitant]
     Indication: BREAKTHROUGH PAIN
     Dosage: 1 TABLET, Q6H
     Route: 048
  22. ASPIRIN [ACETYLSALICYLIC ACID] [Concomitant]
     Active Substance: ASPIRIN
     Dosage: 81 MG, QD
     Route: 048
     Dates: start: 20180204, end: 20180206
  23. ADVIL [IBUPROFEN] [Concomitant]
     Active Substance: IBUPROFEN
     Indication: PAIN
     Dosage: 600 MG, Q6H
     Route: 048
     Dates: start: 20180205, end: 20180206
  24. METHENAMINE MANDELATE. [Concomitant]
     Active Substance: METHENAMINE MANDELATE
     Route: 048

REACTIONS (31)
  - Muscular weakness [Unknown]
  - Feeding disorder [Unknown]
  - Dysmetria [Unknown]
  - Adverse drug reaction [Unknown]
  - Lymphocyte count decreased [Not Recovered/Not Resolved]
  - Dysphonia [Unknown]
  - Pollakiuria [Recovered/Resolved]
  - Cardiomegaly [Unknown]
  - Sensory loss [Unknown]
  - Pyuria [Recovered/Resolved]
  - Leukopenia [Unknown]
  - Functional gastrointestinal disorder [Unknown]
  - Asthenia [Unknown]
  - Cough [Unknown]
  - Ill-defined disorder [Unknown]
  - Movement disorder [Recovered/Resolved]
  - Urinary tract infection [Recovered/Resolved]
  - Urine output increased [Recovered/Resolved]
  - Asthenia [Unknown]
  - Balance disorder [Unknown]
  - Fall [Unknown]
  - Vision blurred [Unknown]
  - Malaise [Unknown]
  - Dysstasia [Unknown]
  - Ataxia [Unknown]
  - Aortic disorder [Unknown]
  - Diarrhoea [Not Recovered/Not Resolved]
  - Atelectasis [Unknown]
  - Lung opacity [Unknown]
  - Fine motor skill dysfunction [Unknown]
  - Hypoaesthesia [Unknown]

NARRATIVE: CASE EVENT DATE: 2018
